FAERS Safety Report 5090978-8 (Version None)
Quarter: 2006Q3

REPORT INFORMATION
  Report Type: 
  Country: None (occurrence: None)
  Receive Date: 20060727
  Receipt Date: 20060501
  Transmission Date: 20061208
  Serious: Yes (Other)
  Sender: FDA-Public Use
  Company Number: 2006059359

PATIENT
  Sex: Female
  Weight: 72.5755 kg

DRUGS (7)
  1. LYRICA [Suspect]
     Indication: ILL-DEFINED DISORDER
     Dosage: 150 MG (75 MG, 2 IN 1 D), ORAL
     Route: 048
     Dates: start: 20060401
  2. AMBIEN [Concomitant]
  3. VICODIN [Concomitant]
  4. ULTRAM [Concomitant]
  5. IBUPROFEN [Concomitant]
  6. ASPIRIN [Concomitant]
  7. ATENOLOL [Concomitant]

REACTIONS (1)
  - RASH [None]
